FAERS Safety Report 4734216-1 (Version None)
Quarter: 2005Q3

REPORT INFORMATION
  Report Type: 
  Country: None (occurrence: None)
  Receive Date: 20050804
  Receipt Date: 20040602
  Transmission Date: 20060218
  Serious: Yes (Hospitalization)
  Sender: FDA-Public Use
  Company Number: NL-2004-025723

PATIENT
  Age: 72 Year
  Sex: Male
  Weight: 110 kg

DRUGS (19)
  1. QUADRAMET [Suspect]
     Indication: PROSTATE CANCER METASTATIC
     Dosage: SEE IMAGE
     Dates: start: 20040210, end: 20040210
  2. QUADRAMET [Suspect]
     Indication: PROSTATE CANCER METASTATIC
     Dosage: SEE IMAGE
     Dates: start: 20040224, end: 20040224
  3. QUADRAMET [Suspect]
     Indication: PROSTATE CANCER METASTATIC
     Dosage: SEE IMAGE
     Dates: start: 20040519, end: 20040519
  4. ZOMETA [Suspect]
     Dosage: SEE IMAGE
     Dates: start: 20040222, end: 20040222
  5. ZOMETA [Suspect]
     Dosage: SEE IMAGE
     Dates: start: 20040323, end: 20040323
  6. ZOMETA [Suspect]
     Dosage: SEE IMAGE
     Dates: start: 20040420, end: 20040420
  7. ZOMETA [Suspect]
     Dosage: SEE IMAGE
     Dates: start: 20040517, end: 20040517
  8. MORPHINE [Suspect]
     Indication: PAIN
     Dosage: 3O MG, 2X/DAY, ORAL
     Route: 048
     Dates: start: 20040520, end: 20040520
  9. TOLTERODINE TARTRATE [Concomitant]
  10. BETAHISTINE (BETAHISTINE) [Concomitant]
  11. ACENOCOUMAROL (ACENOCOUMAROL) [Concomitant]
  12. VENLAFAXINE HCL [Concomitant]
  13. FINASTERIDE [Concomitant]
  14. PANTOPRAZOLE SODIUM [Concomitant]
  15. BUSERELIN (BUSERELIN) [Concomitant]
  16. PARACETAMOL [Concomitant]
  17. METHYLPHENIDATE HCL [Concomitant]
  18. DICLOFENAC W/MISOPROSTOL (MISOPROSTOL) [Concomitant]
  19. ENALAPRIL MALEATE [Concomitant]

REACTIONS (7)
  - COUGH [None]
  - DRUG TOXICITY [None]
  - DYSPNOEA [None]
  - HYPERHIDROSIS [None]
  - NAUSEA [None]
  - OXYGEN SATURATION DECREASED [None]
  - VOMITING [None]
